FAERS Safety Report 9213980 (Version 1)
Quarter: 2013Q2

REPORT INFORMATION
  Report Type: Spontaneous
  Country: US (occurrence: None)
  Receive Date: 20130404
  Receipt Date: 20130404
  Transmission Date: 20140414
  Serious: Yes (Hospitalization)
  Sender: FDA-Public Use
  Company Number: None

PATIENT
  Age: 2 Year
  Sex: Male
  Weight: 14 kg

DRUGS (5)
  1. DEXAMETHASONE [Suspect]
  2. CYTARABINE [Suspect]
  3. METHOTREXATE [Suspect]
  4. ONCASPAR [Suspect]
  5. VINCRISTINE SULFATE [Suspect]

REACTIONS (1)
  - Alanine aminotransferase increased [None]
